FAERS Safety Report 19894908 (Version 1)
Quarter: 2021Q3

REPORT INFORMATION
  Report Type: Spontaneous
  Country: ES (occurrence: ES)
  Receive Date: 20210928
  Receipt Date: 20210928
  Transmission Date: 20211014
  Serious: Yes (Hospitalization)
  Sender: FDA-Public Use
  Company Number: ES-BAXTER-2021BAX029596

PATIENT
  Sex: Male

DRUGS (6)
  1. RITUXIMAB. [Concomitant]
     Active Substance: RITUXIMAB
     Indication: NODAL MARGINAL ZONE B-CELL LYMPHOMA STAGE IV
     Route: 065
  2. DEXCHLORPHENIRAMINE [Concomitant]
     Active Substance: DEXCHLORPHENIRAMINE
     Indication: NODAL MARGINAL ZONE B-CELL LYMPHOMA STAGE IV
     Route: 065
  3. DEXAMETHASONE. [Concomitant]
     Active Substance: DEXAMETHASONE
     Indication: NODAL MARGINAL ZONE B-CELL LYMPHOMA STAGE IV
     Route: 065
  4. BENDAMUSTINA BAXTER 2,5 MG/ML POLVO PARA CONCENTRADO PARA SOLUCION PAR [Suspect]
     Active Substance: BENDAMUSTINE HYDROCHLORIDE
     Indication: NODAL MARGINAL ZONE B-CELL LYMPHOMA STAGE IV
     Route: 065
  5. ACETAMINOPHEN. [Concomitant]
     Active Substance: ACETAMINOPHEN
     Indication: NODAL MARGINAL ZONE B-CELL LYMPHOMA STAGE IV
     Route: 065
  6. ONDANSETRON [Concomitant]
     Active Substance: ONDANSETRON
     Indication: NODAL MARGINAL ZONE B-CELL LYMPHOMA STAGE IV
     Route: 065

REACTIONS (7)
  - Malaise [Unknown]
  - Pyrexia [Unknown]
  - Fatigue [Unknown]
  - Nausea [Unknown]
  - Diarrhoea [Unknown]
  - Jaundice [Unknown]
  - Arthralgia [Unknown]

NARRATIVE: CASE EVENT DATE: 202012
